FAERS Safety Report 22060682 (Version 1)
Quarter: 2023Q1

REPORT INFORMATION
  Report Type: Spontaneous
  Country: None (occurrence: US)
  Receive Date: 20230303
  Receipt Date: 20230303
  Transmission Date: 20230418
  Serious: Yes (Life-Threatening)
  Sender: FDA-Public Use
  Company Number: US-i-Health, Inc.-2138675

PATIENT
  Age: 59 Year
  Sex: Female
  Weight: 65.909 kg

DRUGS (1)
  1. AZO URINARY PAIN RELIEF MAXIMUM STRENGTH [Suspect]
     Active Substance: PHENAZOPYRIDINE HYDROCHLORIDE
     Indication: Analgesic therapy
     Route: 048
     Dates: start: 20230214, end: 20230214

REACTIONS (1)
  - Hypertensive emergency [Unknown]

NARRATIVE: CASE EVENT DATE: 20230214
